FAERS Safety Report 6306884-4 (Version None)
Quarter: 2009Q3

REPORT INFORMATION
  Report Type: 
  Country: None (occurrence: None)
  Receive Date: 20090812
  Receipt Date: 20090803
  Transmission Date: 20100115
  Serious: Yes (Hospitalization, Other)
  Sender: FDA-Public Use
  Company Number: US-PFIZER INC-2009157668

PATIENT
  Sex: Male
  Weight: 74.4 kg

DRUGS (4)
  1. CAMPTOSAR [Suspect]
  2. FLUOROURACIL [Suspect]
  3. FOLINIC ACID [Suspect]
  4. AVASTIN [Suspect]
     Indication: COLON CANCER METASTATIC
     Dosage: 560 MG, EVERY 14 DAYS
     Route: 042
     Dates: start: 20081013, end: 20090112

REACTIONS (1)
  - PAIN IN EXTREMITY [None]
